FAERS Safety Report 5139255-7 (Version None)
Quarter: 2006Q4

REPORT INFORMATION
  Report Type: 
  Country: None (occurrence: None)
  Receive Date: 20061024
  Receipt Date: 20061011
  Transmission Date: 20070319
  Serious: Yes (Hospitalization)
  Sender: FDA-Public Use
  Company Number: 2006US002267

PATIENT
  Age: 19 Year
  Sex: Male
  Weight: 56.7 kg

DRUGS (2)
  1. PROGRAF [Suspect]
     Indication: PROPHYLAXIS AGAINST TRANSPLANT REJECTION
     Dosage: 2 MG, BID, ORAL
     Route: 048
     Dates: start: 20051019
  2. CELLCEPT [Concomitant]

REACTIONS (5)
  - CHILLS [None]
  - MENINGITIS VIRAL [None]
  - MUSCLE SPASMS [None]
  - MYALGIA [None]
  - RHINORRHOEA [None]
